FAERS Safety Report 7221346-8 (Version None)
Quarter: 2010Q4

REPORT INFORMATION
  Report Type: 
  Country: None (occurrence: None)
  Receive Date: 20101230
  Receipt Date: 20101214
  Transmission Date: 20110411
  Serious: Yes (Other)
  Sender: FDA-Public Use
  Company Number: 2010AP002537

PATIENT
  Age: 59 Year
  Sex: Female

DRUGS (3)
  1. RISPERIDONE [Suspect]
     Indication: SCHIZOPHRENIA
     Dosage: 3 MG; BID PO, 2 MG; PO; BID
     Route: 048
  2. IMUVAC /00027001/ (INFLUENZA VIRUS VACCINE POLYVALENT) [Suspect]
     Indication: INFLUENZA IMMUNISATION
  3. OMEPRAZOLE [Concomitant]

REACTIONS (6)
  - AKATHISIA [None]
  - EXTRAPYRAMIDAL DISORDER [None]
  - FATIGUE [None]
  - MUSCULOSKELETAL STIFFNESS [None]
  - RESTLESSNESS [None]
  - TREMOR [None]
